FAERS Safety Report 6728059-7 (Version None)
Quarter: 2010Q2

REPORT INFORMATION
  Report Type: 
  Country: None (occurrence: None)
  Receive Date: 20100517
  Receipt Date: 20100510
  Transmission Date: 20101027
  Serious: Yes (Hospitalization)
  Sender: FDA-Public Use
  Company Number: US-ABBOTT-10P-163-0643707-00

PATIENT
  Sex: Female
  Weight: 70.824 kg

DRUGS (2)
  1. HUMIRA [Suspect]
     Indication: RHEUMATOID ARTHRITIS
     Route: 058
     Dates: start: 20080101, end: 20100401
  2. HUMIRA [Suspect]
     Route: 058
     Dates: start: 20100501

REACTIONS (1)
  - GOUT [None]
